FAERS Safety Report 19681560 (Version 3)
Quarter: 2022Q1

REPORT INFORMATION
  Report Type: Spontaneous
  Country: DE (occurrence: DE)
  Receive Date: 20210810
  Receipt Date: 20220127
  Transmission Date: 20220423
  Serious: Yes (Hospitalization, Other)
  Sender: FDA-Public Use
  Company Number: NVSC2021DE175392

PATIENT
  Age: 43 Year
  Sex: Male

DRUGS (10)
  1. ARIPIPRAZOLE [Suspect]
     Active Substance: ARIPIPRAZOLE
     Indication: Product used for unknown indication
     Dosage: 20 MG, QD (1-0-0-0)
     Route: 065
  2. QUETIAPINE [Suspect]
     Active Substance: QUETIAPINE
     Indication: Product used for unknown indication
     Dosage: 400 MG, QD (0-0-1-0)
     Route: 065
  3. PREGABALIN [Concomitant]
     Active Substance: PREGABALIN
     Indication: Product used for unknown indication
     Dosage: 150 MG, QD (1-0-0-0)
     Route: 065
  4. RAMIPRIL [Concomitant]
     Active Substance: RAMIPRIL
     Indication: Product used for unknown indication
     Dosage: 5 MG, QD (2.5 MG, BID (1-0-1-0))
     Route: 005
  5. BIPERIDEN [Concomitant]
     Active Substance: BIPERIDEN
     Indication: Product used for unknown indication
     Dosage: 4 MG, QD (1-0-0-0)
     Route: 065
  6. METAMIZOLE [Concomitant]
     Active Substance: METAMIZOLE
     Indication: Product used for unknown indication
     Dosage: 500 MG (AS NEEDED)
     Route: 065
  7. SITAGLIPTIN [Concomitant]
     Active Substance: SITAGLIPTIN
     Indication: Product used for unknown indication
     Dosage: 100 MG, QD (1-0-0-0)
     Route: 065
  8. METFORMIN [Concomitant]
     Active Substance: METFORMIN HYDROCHLORIDE
     Indication: Product used for unknown indication
     Dosage: 500 MG (2-0-1-0)
     Route: 065
  9. TORSEMIDE [Concomitant]
     Active Substance: TORSEMIDE
     Indication: Product used for unknown indication
     Dosage: 10 MG, QD (1-0-0-0)
     Route: 065
  10. BISOPROLOL [Concomitant]
     Active Substance: BISOPROLOL
     Indication: Product used for unknown indication
     Dosage: 10 MG, QD (5 MG, 1-0-1-0)
     Route: 065

REACTIONS (9)
  - Schizophrenia [Unknown]
  - Electrocardiogram abnormal [Unknown]
  - Erythema [Unknown]
  - Dyspnoea [Unknown]
  - Oedema peripheral [Unknown]
  - Diabetes mellitus [Unknown]
  - Weight increased [Unknown]
  - Peripheral swelling [Unknown]
  - Hypertension [Unknown]
